FAERS Safety Report 9888588 (Version 2)
Quarter: 2014Q1

REPORT INFORMATION
  Report Type: Report from Study
  Country: BD (occurrence: BD)
  Receive Date: 20140211
  Receipt Date: 20140211
  Transmission Date: 20141002
  Serious: Yes (Death, Hospitalization)
  Sender: FDA-Public Use
  Company Number: PHHY2014BD013526

PATIENT
  Age: 67 Year
  Sex: Male

DRUGS (2)
  1. EXELON PATCH [Suspect]
     Indication: DEMENTIA
     Dosage: 4.6 MG (PATCH 5 CM2)/24 H
     Route: 062
     Dates: start: 201307
  2. ANTIHYPERTENSIVES [Concomitant]
     Dosage: UNK UKN, UNK
     Dates: start: 201301

REACTIONS (3)
  - Cerebrovascular accident [Fatal]
  - Restlessness [Unknown]
  - Gait disturbance [Unknown]
